FAERS Safety Report 6988650-X (Version None)
Quarter: 2010Q3

REPORT INFORMATION
  Report Type: 
  Country: None (occurrence: None)
  Receive Date: 20100914
  Receipt Date: 20100908
  Transmission Date: 20110219
  Serious: Yes (Life-Threatening, Hospitalization, Other)
  Sender: FDA-Public Use
  Company Number: A-NJ2010-39028

PATIENT
  Age: 53 Year
  Sex: Female

DRUGS (5)
  1. VELETRI (EPOPROSTENOL SODIUM) INJECTION [Suspect]
     Indication: PULMONARY ARTERIAL HYPERTENSION
     Dosage: SEE IMAGE
     Route: 041
     Dates: start: 20100801, end: 20100801
  2. VELETRI (EPOPROSTENOL SODIUM) INJECTION [Suspect]
     Indication: PULMONARY ARTERIAL HYPERTENSION
     Dosage: SEE IMAGE
     Route: 041
     Dates: start: 20100803, end: 20100801
  3. VELETRI (EPOPROSTENOL SODIUM) INJECTION [Suspect]
     Indication: PULMONARY ARTERIAL HYPERTENSION
     Dosage: SEE IMAGE
     Route: 041
     Dates: start: 20100727
  4. VELETRI (EPOPROSTENOL SODIUM) INJECTION [Suspect]
     Indication: PULMONARY ARTERIAL HYPERTENSION
     Dosage: SEE IMAGE
     Route: 041
     Dates: start: 20100801
  5. COUMADIN [Concomitant]

REACTIONS (12)
  - DEVICE RELATED INFECTION [None]
  - DYSPNOEA [None]
  - FEELING ABNORMAL [None]
  - HYPOTENSION [None]
  - LACRIMATION INCREASED [None]
  - NASAL CONGESTION [None]
  - NAUSEA [None]
  - RESPIRATORY FAILURE [None]
  - SEPSIS [None]
  - STAPHYLOCOCCAL INFECTION [None]
  - TACHYCARDIA [None]
  - TREMOR [None]
